FAERS Safety Report 18809019 (Version 2)
Quarter: 2021Q1

REPORT INFORMATION
  Report Type: Spontaneous
  Country: US (occurrence: US)
  Receive Date: 20210129
  Receipt Date: 20210302
  Transmission Date: 20210419
  Serious: No
  Sender: FDA-Public Use
  Company Number: US-ASTRAZENECA-2021A013983

PATIENT
  Sex: Male
  Weight: 122.5 kg

DRUGS (2)
  1. BYDUREON BCISE [Suspect]
     Active Substance: EXENATIDE
     Indication: TYPE 2 DIABETES MELLITUS
     Dosage: ONCE A WEEK
     Route: 058
  2. TRESIBA [Concomitant]
     Active Substance: INSULIN DEGLUDEC
     Indication: TYPE 2 DIABETES MELLITUS
     Dosage: UNKNOWN, DAILY
     Route: 065

REACTIONS (6)
  - Device delivery system issue [Unknown]
  - Glycosylated haemoglobin increased [Recovered/Resolved]
  - Injection site mass [Unknown]
  - Circumstance or information capable of leading to device use error [Unknown]
  - Device leakage [Unknown]
  - Blood glucose increased [Recovered/Resolved]
